FAERS Safety Report 9870786 (Version 3)
Quarter: 2014Q2

REPORT INFORMATION
  Report Type: Spontaneous
  Country: US (occurrence: US)
  Receive Date: 20140205
  Receipt Date: 20140609
  Transmission Date: 20141212
  Serious: Yes (Hospitalization)
  Sender: FDA-Public Use
  Company Number: US-BAYER-2014-018346

PATIENT
  Age: 40 Year
  Sex: Female

DRUGS (3)
  1. MIRENA [Suspect]
     Indication: CONTRACEPTION
     Dosage: 20 MCG/24HR, CONT
     Route: 015
     Dates: start: 20090324, end: 20130730
  2. PROCHLORPERAZINE MALEATE [Concomitant]
  3. LEVAQUIN [Concomitant]

REACTIONS (7)
  - Uterine perforation [None]
  - Injury [None]
  - Pain [None]
  - Emotional distress [None]
  - Constipation [None]
  - Post procedural discomfort [None]
  - Procedural pain [None]
